FAERS Safety Report 5197761-3 (Version None)
Quarter: 2006Q4

REPORT INFORMATION
  Report Type: 
  Country: None (occurrence: None)
  Receive Date: 20061228
  Receipt Date: 20061212
  Transmission Date: 20070319
  Serious: Yes (Hospitalization)
  Sender: FDA-Public Use
  Company Number: 234264

PATIENT
  Age: 67 Year
  Sex: Male

DRUGS (4)
  1. AVASTIN [Suspect]
     Indication: COLORECTAL CANCER
     Dosage: 405 MG, QD, INTRAVENOUS
     Route: 042
     Dates: start: 20051220
  2. CAPECITABINE (CAPECITABINE) [Suspect]
     Indication: COLORECTAL CANCER
     Dosage: 2600 MG, ORAL
     Route: 048
     Dates: start: 20051221
  3. OXALIPLATIN [Suspect]
     Indication: COLORECTAL CANCER
     Dates: start: 20051220
  4. CETUXIMAB (CETUXIMAB) [Suspect]
     Indication: COLORECTAL CANCER
     Dosage: 688 MG, QD, INTRAVENOUS
     Route: 042
     Dates: start: 20051220

REACTIONS (2)
  - GASTRIC ULCER [None]
  - VARICES OESOPHAGEAL [None]
